FAERS Safety Report 24553717 (Version 1)
Quarter: 2024Q4

REPORT INFORMATION
  Report Type: Report from Study
  Country: US (occurrence: US)
  Receive Date: 20241028
  Receipt Date: 20241028
  Transmission Date: 20250115
  Serious: No
  Sender: ROCHE
  Company Number: US-ROCHE-3574752

PATIENT
  Sex: Male

DRUGS (8)
  1. NUTROPIN AQ [Suspect]
     Active Substance: SOMATROPIN
     Indication: End stage renal disease
     Route: 058
  2. CALCITRIOL [Concomitant]
     Active Substance: CALCITRIOL
  3. CHOLECALCIFEROL [Concomitant]
     Active Substance: CHOLECALCIFEROL
  4. EPOETIN ALFA [Concomitant]
     Active Substance: ERYTHROPOIETIN
  5. GENTAMICIN [Concomitant]
     Active Substance: GENTAMICIN
  6. LISINOPRIL [Concomitant]
     Active Substance: LISINOPRIL
  7. POLYETHYLENE GLYCOL [Concomitant]
     Active Substance: POLYETHYLENE GLYCOL
  8. SEVELAMER [Concomitant]
     Active Substance: SEVELAMER

REACTIONS (1)
  - Blood pressure increased [Unknown]
